FAERS Safety Report 9123253 (Version 1)
Quarter: 2013Q1

REPORT INFORMATION
  Report Type: Spontaneous
  Country: TW (occurrence: None)
  Receive Date: 20130129
  Receipt Date: 20130129
  Transmission Date: 20140127
  Serious: Yes (Hospitalization)
  Sender: FDA-Public Use
  Company Number: 144386

PATIENT
  Age: 60 Year
  Sex: Male

DRUGS (1)
  1. FAMOTIDINE [Suspect]
     Indication: PEPTIC ULCER
     Dosage: UNKNOWN?UNK

REACTIONS (7)
  - Eosinophilia [None]
  - Cerebral infarction [None]
  - Dysphagia [None]
  - Dysarthria [None]
  - Blood creatine phosphokinase MB increased [None]
  - Troponin I increased [None]
  - Leukocytosis [None]
